FAERS Safety Report 10159925 (Version 1)
Quarter: 2014Q2

REPORT INFORMATION
  Report Type: Spontaneous
  Country: US (occurrence: US)
  Receive Date: 20140508
  Receipt Date: 20140508
  Transmission Date: 20141212
  Serious: Yes (Other)
  Sender: FDA-Public Use
  Company Number: US-SA-2014SA056734

PATIENT
  Age: 83 Year
  Sex: Female

DRUGS (3)
  1. MULTAQ [Suspect]
     Indication: ATRIAL FIBRILLATION
     Route: 048
     Dates: start: 2012
  2. ATENOLOL [Concomitant]
     Indication: BLOOD PRESSURE
     Dosage: SINCE 5 YEARS
  3. ATENOLOL [Concomitant]
     Indication: BLOOD PRESSURE
     Dosage: HALF A 25 MG IN THE MORNING AND 25 MG AT THE NIGHT

REACTIONS (3)
  - Atrial fibrillation [Unknown]
  - Rash pruritic [Unknown]
  - Fatigue [Unknown]
